FAERS Safety Report 8981532 (Version 3)
Quarter: 2013Q1

REPORT INFORMATION
  Report Type: Spontaneous
  Country: US (occurrence: US)
  Receive Date: 20121221
  Receipt Date: 20130125
  Transmission Date: 20140127
  Serious: No
  Sender: FDA-Public Use
  Company Number: US-BAYER-2012-133554

PATIENT
  Age: 42 Year
  Sex: Female

DRUGS (1)
  1. GADAVIST [Suspect]
     Indication: IMAGING PROCEDURE
     Dosage: 6 ML, ONCE
     Route: 042
     Dates: start: 20121211, end: 20121211

REACTIONS (2)
  - Rash erythematous [None]
  - Feeling hot [None]
